FAERS Safety Report 8078594-7 (Version None)
Quarter: 2012Q1

REPORT INFORMATION
  Report Type: 
  Country: None (occurrence: None)
  Receive Date: 20120124
  Receipt Date: 20120112
  Transmission Date: 20120608
  Serious: Yes (Hospitalization)
  Sender: FDA-Public Use
  Company Number: CA-007496

PATIENT
  Age: 58 Year
  Sex: Male

DRUGS (6)
  1. MAYCOR NITROSPRAY [Concomitant]
  2. LIPITOR [Concomitant]
  3. LISINOPRIL [Concomitant]
  4. FIRMAGON [Suspect]
     Indication: PROSTATE CANCER
     Dosage: 80 MG 1X/MONTH, SUBCUTANEOUS
     Route: 058
     Dates: start: 20110620, end: 20111212
  5. FUROSEMIDE [Concomitant]
  6. ASPIRIN [Concomitant]

REACTIONS (4)
  - ASTHENIA [None]
  - MALAISE [None]
  - PALPITATIONS [None]
  - DYSPNOEA [None]
